FAERS Safety Report 13328767 (Version 1)
Quarter: 2017Q1

REPORT INFORMATION
  Report Type: Spontaneous
  Country: US (occurrence: US)
  Receive Date: 20170313
  Receipt Date: 20170313
  Transmission Date: 20170428
  Serious: No
  Sender: FDA-Public Use
  Company Number: US-BEH-2017078776

PATIENT
  Sex: Female

DRUGS (3)
  1. STIMATE [Suspect]
     Active Substance: DESMOPRESSIN ACETATE
     Indication: VON WILLEBRAND^S DISEASE
     Dosage: 1.5 MG, PRN
     Route: 045
     Dates: start: 20160803
  2. STIMATE [Suspect]
     Active Substance: DESMOPRESSIN ACETATE
     Indication: MENORRHAGIA
  3. STIMATE [Suspect]
     Active Substance: DESMOPRESSIN ACETATE
     Indication: EPISTAXIS

REACTIONS (3)
  - Somnolence [Unknown]
  - Fatigue [Unknown]
  - Abdominal distension [Unknown]
